FAERS Safety Report 20977576 (Version 1)
Quarter: 2022Q2

REPORT INFORMATION
  Report Type: Spontaneous
  Country: JP (occurrence: JP)
  Receive Date: 20220618
  Receipt Date: 20220618
  Transmission Date: 20220721
  Serious: Yes (Other)
  Sender: FDA-Public Use
  Company Number: JP-JNJFOC-20220631111

PATIENT
  Age: 28 Year
  Sex: Male

DRUGS (1)
  1. RISPERDAL [Suspect]
     Active Substance: RISPERIDONE
     Indication: Product used for unknown indication
     Dosage: DOSE UNKNOWN, P.R.N?1MG/ML
     Route: 048

REACTIONS (3)
  - Intentional self-injury [Unknown]
  - Inappropriate schedule of product administration [Unknown]
  - Off label use [Unknown]
